FAERS Safety Report 5909387-1 (Version None)
Quarter: 2008Q4

REPORT INFORMATION
  Report Type: 
  Country: None (occurrence: None)
  Receive Date: 20081006
  Receipt Date: 20080922
  Transmission Date: 20090506
  Serious: Yes (Hospitalization)
  Sender: FDA-Public Use
  Company Number: FR-B.I. PHARMACEUTICALS,INC./RIDGEFIELD-2008-FF-00672FF

PATIENT
  Sex: Male
  Weight: 74 kg

DRUGS (1)
  1. APTIVUS [Suspect]
     Route: 048
     Dates: end: 20080131

REACTIONS (1)
  - CHOLECYSTITIS [None]
